FAERS Safety Report 9893564 (Version 2)
Quarter: 2014Q4

REPORT INFORMATION
  Report Type: Spontaneous
  Country: FR (occurrence: FR)
  Receive Date: 20140213
  Receipt Date: 20141028
  Transmission Date: 20150529
  Serious: Yes (Death, Hospitalization, Other)
  Sender: FDA-Public Use
  Company Number: FR-ELI_LILLY_AND_COMPANY-FR201402000099

PATIENT
  Age: 38 Year
  Sex: Male

DRUGS (8)
  1. GEMZAR [Suspect]
     Active Substance: GEMCITABINE HYDROCHLORIDE
     Indication: ADENOCARCINOMA PANCREAS
     Dosage: UNK
     Route: 042
     Dates: start: 201207, end: 20130506
  2. DETICENE [Concomitant]
     Active Substance: DACARBAZINE
  3. 5 FU [Concomitant]
     Active Substance: FLUOROURACIL
  4. GEMZAR [Suspect]
     Active Substance: GEMCITABINE HYDROCHLORIDE
     Indication: METASTASES TO PERITONEUM
  5. GEMZAR [Suspect]
     Active Substance: GEMCITABINE HYDROCHLORIDE
     Indication: METASTATIC NEOPLASM
  6. OXALIPLATIN. [Suspect]
     Active Substance: OXALIPLATIN
     Indication: ADENOCARCINOMA PANCREAS
     Dosage: UNK
     Route: 065
     Dates: start: 201207, end: 201212
  7. OXALIPLATIN. [Suspect]
     Active Substance: OXALIPLATIN
     Indication: METASTASES TO PERITONEUM
  8. OXALIPLATIN. [Suspect]
     Active Substance: OXALIPLATIN
     Indication: METASTATIC NEOPLASM

REACTIONS (15)
  - Thrombocytosis [Not Recovered/Not Resolved]
  - Malignant neoplasm progression [Unknown]
  - Leukocytosis [Not Recovered/Not Resolved]
  - Septic shock [Unknown]
  - Cachexia [Unknown]
  - Pyrexia [Recovered/Resolved]
  - General physical health deterioration [Unknown]
  - Death [Fatal]
  - Blood creatinine increased [Not Recovered/Not Resolved]
  - C-reactive protein increased [Not Recovered/Not Resolved]
  - Escherichia urinary tract infection [Unknown]
  - Chronic kidney disease [Unknown]
  - Deep vein thrombosis [Unknown]
  - Acute kidney injury [Unknown]
  - Proteinuria [Not Recovered/Not Resolved]

NARRATIVE: CASE EVENT DATE: 201302
